FAERS Safety Report 6541063-7 (Version None)
Quarter: 2010Q1

REPORT INFORMATION
  Report Type: 
  Country: None (occurrence: None)
  Receive Date: 20100118
  Receipt Date: 20100111
  Transmission Date: 20100710
  Serious: Yes (Life-Threatening, Hospitalization)
  Sender: FDA-Public Use
  Company Number: PHHY2010FR01487

PATIENT
  Age: 68 Year
  Sex: Female

DRUGS (2)
  1. CUBICIN [Suspect]
     Indication: ARTHRITIS INFECTIVE
  2. RIFAMPICIN [Suspect]
     Indication: ARTHRITIS INFECTIVE

REACTIONS (3)
  - EOSINOPHIL COUNT INCREASED [None]
  - EOSINOPHILIC PNEUMONIA [None]
  - RESPIRATORY DISTRESS [None]
